APPROVED DRUG PRODUCT: EVOXAC
Active Ingredient: CEVIMELINE HYDROCHLORIDE
Strength: 30MG
Dosage Form/Route: CAPSULE;ORAL
Application: N020989 | Product #002 | TE Code: AB
Applicant: COSETTE PHARMACEUTICALS INC
Approved: Jan 11, 2000 | RLD: Yes | RS: Yes | Type: RX